FAERS Safety Report 13667276 (Version 4)
Quarter: 2018Q1

REPORT INFORMATION
  Report Type: Spontaneous
  Country: NL (occurrence: NL)
  Receive Date: 20170619
  Receipt Date: 20180131
  Transmission Date: 20180508
  Serious: Yes (Life-Threatening, Hospitalization, Other)
  Sender: FDA-Public Use
  Company Number: NL-MYLANLABS-2017M1035779

PATIENT
  Age: 63 Year
  Sex: Female

DRUGS (14)
  1. CLOZAPINE. [Suspect]
     Active Substance: CLOZAPINE
     Indication: PSYCHOTIC DISORDER
     Dosage: 400 MG, QD
     Dates: start: 2014
  2. CLOZAPINE. [Suspect]
     Active Substance: CLOZAPINE
     Dosage: 700 MG, QD
     Dates: start: 201406
  3. LITHIUM. [Suspect]
     Active Substance: LITHIUM
     Dosage: 800 MG, QD
     Dates: start: 201406, end: 2014
  4. 5-FLUOROURACIL                     /00098801/ [Suspect]
     Active Substance: FLUOROURACIL
     Indication: BREAST CANCER
     Dosage: UNK UNK, CYCLE
     Dates: start: 2014
  5. FLUPENTIXOL [Concomitant]
     Active Substance: FLUPENTIXOL
     Dosage: 15 MG, QD
  6. FLUPENTIXOL [Concomitant]
     Active Substance: FLUPENTIXOL
     Dosage: 25 MG, QD
     Route: 065
     Dates: start: 201406
  7. EPIRUBICIN [Suspect]
     Active Substance: EPIRUBICIN
     Indication: BREAST CANCER
     Dosage: UNK, CYCLE
     Dates: start: 2014
  8. CLOZAPINE. [Suspect]
     Active Substance: CLOZAPINE
     Dosage: 12.5 MG, BID
  9. CLOZAPINE. [Suspect]
     Active Substance: CLOZAPINE
     Indication: SCHIZOPHRENIA
     Dosage: 650 MG, QD
  10. FLUPENTIXOL [Concomitant]
     Active Substance: FLUPENTIXOL
     Indication: SCHIZOPHRENIA
     Dosage: 20 MG, QD
     Dates: start: 2012
  11. CLOZAPINE. [Suspect]
     Active Substance: CLOZAPINE
     Dosage: 650 MG, QD
  12. CYCLOPHOSPHAMIDE. [Suspect]
     Active Substance: CYCLOPHOSPHAMIDE
     Indication: BREAST CANCER
     Dosage: UNK UNK, CYCLE
     Dates: start: 2014
  13. CLOZAPINE. [Suspect]
     Active Substance: CLOZAPINE
     Dosage: 400 MG, QD
  14. LITHIUM. [Suspect]
     Active Substance: LITHIUM
     Indication: SCHIZOPHRENIA
     Dosage: UNK

REACTIONS (14)
  - Neutrophil count decreased [Recovered/Resolved]
  - Quality of life decreased [Unknown]
  - Disturbance in attention [Unknown]
  - Left atrial enlargement [Unknown]
  - Congestive cardiomyopathy [Unknown]
  - Antipsychotic drug level above therapeutic [Recovered/Resolved]
  - Akathisia [Unknown]
  - Somnolence [Unknown]
  - Bedridden [Unknown]
  - Schizophrenia [Unknown]
  - White blood cell count decreased [Recovered/Resolved]
  - Anxiety [Unknown]
  - Cardiac failure chronic [Recovering/Resolving]
  - Breast cancer female [Unknown]

NARRATIVE: CASE EVENT DATE: 2014
